FAERS Safety Report 21997124 (Version 4)
Quarter: 2023Q2

REPORT INFORMATION
  Report Type: Report from Study
  Country: GB (occurrence: GB)
  Receive Date: 20230215
  Receipt Date: 20230403
  Transmission Date: 20230721
  Serious: Yes (Other)
  Sender: FDA-Public Use
  Company Number: GB-ABBVIE-4308105

PATIENT
  Age: 71 Year
  Sex: Male

DRUGS (3)
  1. CARBIDOPA\LEVODOPA [Suspect]
     Active Substance: CARBIDOPA\LEVODOPA
     Indication: Parkinson^s disease
     Dosage: CR:24 HOUR DUODOPA, 20MGS/5MGS
     Route: 050
  2. CARBIDOPA\LEVODOPA [Suspect]
     Active Substance: CARBIDOPA\LEVODOPA
  3. BENSERAZIDE HYDROCHLORIDE\LEVODOPA [Concomitant]
     Active Substance: BENSERAZIDE HYDROCHLORIDE\LEVODOPA
     Indication: Parkinson^s disease
     Dosage: FREQUENCY TEXT: PRN
     Route: 048

REACTIONS (10)
  - Lung neoplasm malignant [Unknown]
  - Hypophagia [Unknown]
  - Pulmonary oedema [Unknown]
  - Muscle rigidity [Unknown]
  - Dyspnoea [Unknown]
  - On and off phenomenon [Unknown]
  - Choking [Unknown]
  - Anxiety [Unknown]
  - Device issue [Unknown]
  - Terminal state [Unknown]
